FAERS Safety Report 8764298 (Version 1)
Quarter: 2012Q4

REPORT INFORMATION
  Report Type: 
  Country: None (occurrence: None)
  Receive Date: 20120831
  Receipt Date: 20120831
  Transmission Date: 20130627
  Serious: Yes (Other)
  Sender: FDA-Public Use
  Company Number: RS-BAYER-2012-090430

PATIENT
  Age: 15 Year
  Sex: Male

DRUGS (3)
  1. ANTIHEMOPHILIC FACTOR VIII (RECOMBINANT), SUCROSE FORMULATED [Suspect]
     Dosage: 50 iu/kg, BID
  2. VANCOMYCIN [Concomitant]
     Indication: ARTHRITIS BACTERIAL
  3. AMIKACIN [Concomitant]
     Indication: ARTHRITIS BACTERIAL

REACTIONS (2)
  - Anti factor VIII antibody positive [Recovered/Resolved]
  - Haemarthrosis [None]
